FAERS Safety Report 19664172 (Version 3)
Quarter: 2021Q3

REPORT INFORMATION
  Report Type: Spontaneous
  Country: US (occurrence: US)
  Receive Date: 20210806
  Receipt Date: 20210906
  Transmission Date: 20211014
  Serious: Yes (Other)
  Sender: FDA-Public Use
  Company Number: US-NOVEN PHARMACEUTICALS, INC.-2021-NOV-US003601

PATIENT
  Sex: Female

DRUGS (1)
  1. COMBIPATCH [Suspect]
     Active Substance: ESTRADIOL\NORETHINDRONE ACETATE
     Indication: MENOPAUSE
     Dosage: 0.05/0.14MG, UNKNOWN
     Route: 062

REACTIONS (6)
  - Therapeutic product ineffective [Not Recovered/Not Resolved]
  - Nausea [Not Recovered/Not Resolved]
  - Product adhesion issue [Not Recovered/Not Resolved]
  - Recalled product administered [Not Recovered/Not Resolved]
  - Device issue [Not Recovered/Not Resolved]
  - Diarrhoea [Not Recovered/Not Resolved]

NARRATIVE: CASE EVENT DATE: 2021
